FAERS Safety Report 5044449-5 (Version None)
Quarter: 2006Q3

REPORT INFORMATION
  Report Type: 
  Country: None (occurrence: None)
  Receive Date: 20060706
  Receipt Date: 20060525
  Transmission Date: 20061208
  Serious: Yes (Life-Threatening, Hospitalization, Disabling, Other)
  Sender: FDA-Public Use
  Company Number: US-GLAXOSMITHKLINE-A0606937A

PATIENT
  Age: 49 Year
  Sex: Female

DRUGS (3)
  1. PAXIL [Suspect]
     Indication: DEPRESSION
     Dosage: 20MG PER DAY
     Route: 048
     Dates: start: 19970101
  2. PHENERGAN [Suspect]
     Indication: DRUG USE FOR UNKNOWN INDICATION
     Dosage: 25MG SEE DOSAGE TEXT
     Route: 042
  3. BIRTH CONTROL [Concomitant]

REACTIONS (19)
  - ABDOMINAL PAIN [None]
  - APHASIA [None]
  - BASILAR ARTERY OCCLUSION [None]
  - BLOOD PRESSURE DECREASED [None]
  - CONVULSION [None]
  - DIARRHOEA [None]
  - DRUG INEFFECTIVE [None]
  - DRUG INTERACTION [None]
  - DYSKINESIA [None]
  - FACIAL PALSY [None]
  - HEART RATE DECREASED [None]
  - HYPOAESTHESIA [None]
  - INFLUENZA [None]
  - LOCKED-IN SYNDROME [None]
  - MIOSIS [None]
  - NAUSEA [None]
  - OVERDOSE [None]
  - TREMOR [None]
  - VOMITING [None]
